FAERS Safety Report 6766493-X (Version None)
Quarter: 2010Q2

REPORT INFORMATION
  Report Type: 
  Country: None (occurrence: None)
  Receive Date: 20100611
  Receipt Date: 20100601
  Transmission Date: 20101027
  Serious: Yes (Other)
  Sender: FDA-Public Use
  Company Number: US-BAYER-201024774NA

PATIENT
  Age: 59 Year
  Sex: Female

DRUGS (6)
  1. MAGNEVIST [Suspect]
     Indication: IMAGING PROCEDURE
  2. OMNISCAN [Suspect]
     Indication: IMAGING PROCEDURE
  3. OPTIMARK [Suspect]
     Indication: IMAGING PROCEDURE
  4. MULTIHANCE [Suspect]
     Indication: IMAGING PROCEDURE
  5. PROHANCE [Suspect]
     Indication: IMAGING PROCEDURE
  6. UNKNOWN GBCA [Suspect]

REACTIONS (9)
  - JOINT STIFFNESS [None]
  - LIVEDO RETICULARIS [None]
  - MOBILITY DECREASED [None]
  - NEPHROGENIC SYSTEMIC FIBROSIS [None]
  - PRURITUS [None]
  - SKIN BURNING SENSATION [None]
  - SKIN DISCOLOURATION [None]
  - SKIN INDURATION [None]
  - SKIN SWELLING [None]
